FAERS Safety Report 16662365 (Version 2)
Quarter: 2020Q1

REPORT INFORMATION
  Report Type: Spontaneous
  Country: FR (occurrence: FR)
  Receive Date: 20190802
  Receipt Date: 20200129
  Transmission Date: 20200409
  Serious: No
  Sender: FDA-Public Use
  Company Number: FR-EXELIXIS-CABO-19018174

PATIENT
  Age: 61 Year
  Sex: Male
  Weight: 62 kg

DRUGS (4)
  1. KARDEGIC [Concomitant]
     Active Substance: ASPIRIN DL-LYSINE
     Dosage: UNK
  2. DUROGESIC [Concomitant]
     Active Substance: FENTANYL
     Dosage: UNK
  3. CABOMETYX [Suspect]
     Active Substance: CABOZANTINIB S-MALATE
     Dosage: UNK (40 MG ONE DAY AND 20 MG THE OTHER DAY)
     Route: 048
     Dates: start: 20180826, end: 20190309
  4. CABOMETYX [Suspect]
     Active Substance: CABOZANTINIB S-MALATE
     Indication: HEPATOCELLULAR CARCINOMA
     Dosage: 40 MG, QD
     Route: 048
     Dates: start: 20180722, end: 20180820

REACTIONS (15)
  - Aspartate aminotransferase increased [Not Recovered/Not Resolved]
  - Diarrhoea [Unknown]
  - Ageusia [Recovered/Resolved]
  - General physical health deterioration [Not Recovered/Not Resolved]
  - Mucosal inflammation [Recovered/Resolved]
  - Alanine aminotransferase increased [Recovered/Resolved]
  - Prealbumin decreased [Not Recovered/Not Resolved]
  - Decreased appetite [Unknown]
  - C-reactive protein increased [Recovering/Resolving]
  - Haemoptysis [Unknown]
  - Malignant neoplasm progression [Unknown]
  - Thrombocytopenia [Recovered/Resolved]
  - Asthenia [Not Recovered/Not Resolved]
  - Weight decreased [Recovered/Resolved]
  - Blood albumin decreased [Not Recovered/Not Resolved]

NARRATIVE: CASE EVENT DATE: 201808
